FAERS Safety Report 9634288 (Version 4)
Quarter: 2013Q4

REPORT INFORMATION
  Report Type: Spontaneous
  Country: GB (occurrence: GB)
  Receive Date: 20131021
  Receipt Date: 20131121
  Transmission Date: 20140711
  Serious: Yes (Death, Hospitalization, Other)
  Sender: FDA-Public Use
  Company Number: GB-JNJFOC-20131009405

PATIENT
  Sex: 0

DRUGS (24)
  1. DOXORUBICIN HYDROCHLORIDE [Suspect]
     Indication: DIFFUSE LARGE B-CELL LYMPHOMA
     Route: 042
  2. RITUXIMAB [Suspect]
     Indication: DIFFUSE LARGE B-CELL LYMPHOMA
     Route: 065
  3. CYCLOPHOSPHAMIDE [Suspect]
     Indication: DIFFUSE LARGE B-CELL LYMPHOMA
     Route: 065
  4. VINCRISTINE [Suspect]
     Indication: DIFFUSE LARGE B-CELL LYMPHOMA
     Route: 065
  5. PREDNISOLONE [Suspect]
     Indication: DIFFUSE LARGE B-CELL LYMPHOMA
     Route: 065
  6. METHOTREXATE [Suspect]
     Indication: DIFFUSE LARGE B-CELL LYMPHOMA
     Route: 037
  7. ETOPOSIDE [Suspect]
     Indication: DIFFUSE LARGE B-CELL LYMPHOMA
     Route: 037
  8. CYTARABINE [Suspect]
     Indication: DIFFUSE LARGE B-CELL LYMPHOMA
     Route: 037
  9. CYCLOPHOSPHAMIDE [Suspect]
     Indication: DIFFUSE LARGE B-CELL LYMPHOMA
     Route: 037
  10. VINCRISTINE [Suspect]
     Indication: DIFFUSE LARGE B-CELL LYMPHOMA
     Route: 037
  11. IFOSFAMIDE [Suspect]
     Indication: DIFFUSE LARGE B-CELL LYMPHOMA
     Route: 037
  12. RITUXIMAB [Suspect]
     Indication: DIFFUSE LARGE B-CELL LYMPHOMA
     Route: 037
  13. ANTIRETROVIRALS (NOS) [Concomitant]
     Indication: HIV INFECTION
     Route: 065
  14. PENTAMIDINE [Concomitant]
     Indication: ANTIFUNGAL PROPHYLAXIS
     Route: 055
  15. COTRIMOXAZOLE [Concomitant]
     Indication: ANTIFUNGAL PROPHYLAXIS
     Route: 048
  16. FLUCONAZOLE [Concomitant]
     Indication: ANTIFUNGAL PROPHYLAXIS
     Route: 065
  17. ITRACONAZOLE [Concomitant]
     Indication: ANTIFUNGAL PROPHYLAXIS
     Route: 065
  18. AMBISOME [Concomitant]
     Indication: ANTIFUNGAL PROPHYLAXIS
     Route: 065
  19. ACYCLOVIR [Concomitant]
     Indication: ANTIVIRAL PROPHYLAXIS
     Route: 065
  20. ACYCLOVIR [Concomitant]
     Indication: ANTIVIRAL PROPHYLAXIS
     Route: 065
  21. AZITHROMYCIN [Concomitant]
     Indication: OPPORTUNISTIC INFECTION PROPHYLAXIS
     Route: 065
  22. CIPROFLOXACIN [Concomitant]
     Indication: OPPORTUNISTIC INFECTION PROPHYLAXIS
     Route: 065
  23. ISONIAZID [Concomitant]
     Indication: ANTIBIOTIC PROPHYLAXIS
     Route: 065
  24. GRANULOCYTE-COLONY STIMULATING FACTOR [Concomitant]
     Indication: PROPHYLAXIS
     Route: 065

REACTIONS (45)
  - Diffuse large B-cell lymphoma [Fatal]
  - Infection in an immunocompromised host [Fatal]
  - Pre-existing disease [Fatal]
  - Staphylococcal infection [Fatal]
  - Escherichia infection [Fatal]
  - Diffuse large B-cell lymphoma refractory [Unknown]
  - Haematotoxicity [Unknown]
  - Giardiasis [Unknown]
  - Clostridium difficile infection [Unknown]
  - Organ failure [Unknown]
  - Bacteraemia [Unknown]
  - Tooth abscess [Unknown]
  - Wound infection [Unknown]
  - Urinary tract infection [Unknown]
  - Anal abscess [Unknown]
  - Cytomegalovirus infection [Unknown]
  - Viraemia [Unknown]
  - Retinitis [Unknown]
  - Herpes simplex [Unknown]
  - Herpes zoster [Unknown]
  - Tinea versicolour [Unknown]
  - Oesophageal candidiasis [Unknown]
  - Cerebral toxoplasmosis [Unknown]
  - Oral candidiasis [Unknown]
  - Mucosal inflammation [Unknown]
  - Vomiting [Unknown]
  - Diarrhoea [Unknown]
  - Gastrointestinal perforation [Unknown]
  - Tumour lysis syndrome [Unknown]
  - Neuropathy peripheral [Unknown]
  - Hepatic enzyme increased [Unknown]
  - Intestinal obstruction [Unknown]
  - Renal impairment [Unknown]
  - Pathological fracture [Unknown]
  - Convulsion [Unknown]
  - Embolism arterial [Unknown]
  - Cardiac failure [Unknown]
  - Post lumbar puncture syndrome [Unknown]
  - Cholecystitis [Unknown]
  - Haematuria [Unknown]
  - Back pain [Unknown]
  - Myalgia [Unknown]
  - Pyrexia [Unknown]
  - Respiratory tract infection fungal [Unknown]
  - Drug ineffective [Unknown]
